FAERS Safety Report 23999450 (Version 1)
Quarter: 2024Q2

REPORT INFORMATION
  Report Type: Spontaneous
  Country: DK (occurrence: DK)
  Receive Date: 20240621
  Receipt Date: 20240621
  Transmission Date: 20240715
  Serious: Yes (Life-Threatening, Hospitalization)
  Sender: FDA-Public Use
  Company Number: DK-MYLANLABS-2024M1054587

PATIENT
  Age: 32 Year
  Sex: Female

DRUGS (4)
  1. ALPROSTADIL [Suspect]
     Active Substance: ALPROSTADIL
     Indication: Uterine atony
     Dosage: UNK
     Route: 065
  2. OXYTOCIN [Concomitant]
     Active Substance: OXYTOCIN
     Indication: Uterine atony
     Dosage: UNK
     Route: 065
  3. DINOPROST [Concomitant]
     Active Substance: DINOPROST
     Indication: Uterine atony
     Dosage: UNK
     Route: 065
  4. METHYLERGOMETRINE [Concomitant]
     Active Substance: METHYLERGONOVINE MALEATE
     Indication: Uterine atony
     Dosage: UNK
     Route: 065

REACTIONS (2)
  - Drug ineffective for unapproved indication [Unknown]
  - Off label use [Unknown]
